FAERS Safety Report 6643654-1 (Version None)
Quarter: 2010Q1

REPORT INFORMATION
  Report Type: 
  Country: None (occurrence: None)
  Receive Date: 20100321
  Receipt Date: 20100308
  Transmission Date: 20100710
  Serious: Yes (Other)
  Sender: FDA-Public Use
  Company Number: US-ELI_LILLY_AND_COMPANY-US201001004326

PATIENT
  Sex: Female
  Weight: 85.261 kg

DRUGS (10)
  1. BYETTA [Suspect]
     Indication: TYPE 2 DIABETES MELLITUS
     Dosage: 5 UG, 2/D
     Route: 058
     Dates: start: 20090101, end: 20090101
  2. BYETTA [Suspect]
     Dosage: 10 UG, 2/D
     Route: 058
     Dates: start: 20090101, end: 20090101
  3. BYETTA [Suspect]
     Dosage: 10 UG, 2/D
     Route: 058
     Dates: start: 20090101, end: 20090101
  4. BYETTA [Suspect]
     Dosage: 10 UG, 2/D
     Route: 058
     Dates: start: 20090101
  5. GLYBURIDE [Concomitant]
     Indication: TYPE 2 DIABETES MELLITUS
     Dosage: 7.5 MG, 2/D
     Route: 048
  6. METFORMIN [Concomitant]
  7. SIMVASTATIN [Concomitant]
     Route: 048
  8. AMBIEN [Concomitant]
     Dosage: UNK, AS NEEDED
     Route: 048
  9. PRILOSEC [Concomitant]
     Route: 048
  10. METROPIN [Concomitant]

REACTIONS (4)
  - AORTIC ANEURYSM [None]
  - BLOOD GLUCOSE INCREASED [None]
  - DRUG DOSE OMISSION [None]
  - WEIGHT DECREASED [None]
